FAERS Safety Report 8818463 (Version 1)
Quarter: 2012Q4

REPORT INFORMATION
  Report Type: 
  Country: US (occurrence: US)
  Receive Date: 20121002
  Receipt Date: 20121002
  Transmission Date: 20130627
  Serious: No
  Sender: FDA-Public Use
  Company Number: US-COVIDIEN/TYCO HEALTHCARE/MALLINCKRODT-T201102034

PATIENT
  Sex: Female

DRUGS (5)
  1. EXALGO EXTENDED RELEASE [Suspect]
     Indication: FIBROMYALGIA
     Dosage: 16 mg, tid
  2. CYMBALTA [Concomitant]
     Dosage: UNK
     Dates: start: 2006
  3. NORFLEX                            /00018303/ [Concomitant]
     Dosage: 1 tablet q hs
  4. ZOLPIDEM [Concomitant]
     Indication: INSOMNIA
  5. DILAUDID [Concomitant]
     Dosage: 4 mg, tid

REACTIONS (3)
  - Tongue disorder [Unknown]
  - Alopecia [Unknown]
  - Eczema [Unknown]
